FAERS Safety Report 11317605 (Version 2)
Quarter: 2015Q3

REPORT INFORMATION
  Report Type: Spontaneous
  Country: US (occurrence: US)
  Receive Date: 20150728
  Receipt Date: 20150924
  Transmission Date: 20151125
  Serious: Yes (Hospitalization, Other)
  Sender: FDA-Public Use
  Company Number: US-JNJFOC-20150715775

PATIENT
  Age: 63 Year
  Sex: Male
  Weight: 92.53 kg

DRUGS (6)
  1. XARELTO [Suspect]
     Active Substance: RIVAROXABAN
     Indication: THROMBOSIS PROPHYLAXIS
     Route: 048
     Dates: start: 20141001, end: 201506
  2. ARISTOCORT TOPICAL [Concomitant]
     Indication: ECZEMA
     Dosage: TID PRN ECZEMATOUS RASH (NOT FOR??FACE)
     Route: 065
  3. VITAMIN D [Concomitant]
     Active Substance: CHOLECALCIFEROL
     Route: 065
  4. QVAR [Concomitant]
     Active Substance: BECLOMETHASONE DIPROPIONATE
     Indication: ASTHMA
     Dosage: 2 PUFFS BY MOUTH 2 TIMES DAILY
     Route: 065
  5. ALBUTEROL. [Concomitant]
     Active Substance: ALBUTEROL
     Indication: ASTHMA
     Dosage: 90 MCG 2 PUFFS BY MOUTH EVERY 4??HOURS IF NEEDED FOR WHEEZING.
     Route: 065
  6. FLONASE [Concomitant]
     Active Substance: FLUTICASONE PROPIONATE
     Indication: RHINITIS ALLERGIC
     Dosage: INHALE 2 SPRAYS INTO BOTH NOSTRILS??ONCE DAILY.
     Route: 045

REACTIONS (4)
  - Atrial fibrillation [Recovering/Resolving]
  - Arterial occlusive disease [Recovering/Resolving]
  - Deep vein thrombosis [Recovered/Resolved]
  - Treatment noncompliance [Unknown]

NARRATIVE: CASE EVENT DATE: 20150618
